FAERS Safety Report 23191322 (Version 1)
Quarter: 2023Q4

REPORT INFORMATION
  Report Type: Spontaneous
  Country: DE (occurrence: DE)
  Receive Date: 20231116
  Receipt Date: 20231116
  Transmission Date: 20240110
  Serious: Yes (Disabling, Other)
  Sender: FDA-Public Use
  Company Number: DE-BFARM-23005926

PATIENT
  Age: 66 Year
  Sex: Female
  Weight: 61 kg

DRUGS (4)
  1. PREGABALIN [Suspect]
     Active Substance: PREGABALIN
     Indication: Restlessness
     Dosage: 150 MILLIGRAM, DAILY, 3X50 MG
     Route: 048
     Dates: start: 202302
  2. PREGABALIN [Suspect]
     Active Substance: PREGABALIN
     Indication: Depression
  3. MIRTAZAPINE [Suspect]
     Active Substance: MIRTAZAPINE
     Indication: Restlessness
     Dosage: 125 MILLIGRAM, DAILY
     Route: 048
     Dates: start: 202302
  4. MIRTAZAPINE [Suspect]
     Active Substance: MIRTAZAPINE
     Indication: Depression

REACTIONS (3)
  - Tooth loss [Recovered/Resolved with Sequelae]
  - Tooth injury [Recovered/Resolved with Sequelae]
  - Dry mouth [Unknown]

NARRATIVE: CASE EVENT DATE: 20230101
